FAERS Safety Report 6832863-4 (Version None)
Quarter: 2010Q3

REPORT INFORMATION
  Report Type: 
  Country: None (occurrence: None)
  Receive Date: 20100712
  Receipt Date: 20070315
  Transmission Date: 20110219
  Serious: No
  Sender: FDA-Public Use
  Company Number: US-PFIZER INC-2007022983

PATIENT
  Sex: Female

DRUGS (2)
  1. CHANTIX [Suspect]
     Indication: SMOKING CESSATION THERAPY
     Dates: start: 20070314
  2. WELLBUTRIN [Concomitant]

REACTIONS (4)
  - HEADACHE [None]
  - PARAESTHESIA [None]
  - PHOTOPSIA [None]
  - SLEEP DISORDER [None]
